FAERS Safety Report 8255575-1 (Version None)
Quarter: 2012Q1

REPORT INFORMATION
  Report Type: 
  Country: None (occurrence: None)
  Receive Date: 20120330
  Receipt Date: 20120320
  Transmission Date: 20120608
  Serious: Yes (Hospitalization)
  Sender: FDA-Public Use
  Company Number: AUR-APL-2012-01561

PATIENT
  Age: 40 Year
  Sex: Female

DRUGS (3)
  1. CITALOPRAM HYDROBROMIDE [Suspect]
     Indication: DEPRESSION
     Dosage: 80 MG (40 MG,2 IN 1 D)
  2. CITALOPRAM HYDROBROMIDE [Suspect]
     Indication: CONDITION AGGRAVATED
     Dosage: 80 MG (40 MG,2 IN 1 D)
  3. OVER-THE-COUNTER HERAL MEDICATIONS(HERBALIFE PRODUCTS) [Concomitant]

REACTIONS (5)
  - LACERATION [None]
  - SYNCOPE [None]
  - BLOOD MAGNESIUM DECREASED [None]
  - TORSADE DE POINTES [None]
  - FALL [None]
